FAERS Safety Report 20766994 (Version 1)
Quarter: 2022Q2

REPORT INFORMATION
  Report Type: Spontaneous
  Country: NL (occurrence: NL)
  Receive Date: 20220429
  Receipt Date: 20220429
  Transmission Date: 20220721
  Serious: Yes (Hospitalization)
  Sender: FDA-Public Use
  Company Number: None

PATIENT
  Age: 77 Year
  Sex: Female
  Weight: 60 kg

DRUGS (6)
  1. HYDROCHLOROTHIAZIDE [Suspect]
     Active Substance: HYDROCHLOROTHIAZIDE
     Indication: Hypertension
     Dosage: 1 DD 1 , UNIT DOSE : 12.5 MG , FREQUENCY TIME : 1 HOURS , DURATION : 2 MONTHS , STRENGTH : 12.5 MG
     Dates: start: 202202, end: 20220405
  2. IRBESARTAN [Concomitant]
     Active Substance: IRBESARTAN
     Dosage: 300 MILLIGRAM DAILY; 1 X PER DAY 1 PIECE , THERAPY START DATE AND END DATE : ASKU , STRENGTH : 300 M
  3. CLOPIDOGREL [Concomitant]
     Active Substance: CLOPIDOGREL BISULFATE
     Dosage: 75 MILLIGRAM DAILY; 1 X PER DAY 1 PIECE , STRENGTH : 75 MG , BRAND NAME NOT SPECIFIED , THERAPY STAR
  4. ZOPICLONE [Concomitant]
     Active Substance: ZOPICLONE
     Dosage: 7.5 MILLIGRAM DAILY; 1 X PER DAY 1 PIECE , STRENGTH : 7.5 MG ,THERAPY START DATE AND END DATE : ASKU
  5. NADROPARIN [Concomitant]
     Active Substance: NADROPARIN
     Dosage: .6 ML DAILY; 1 X PER DAY 1 PIECE , STRENGTH : 9500IE/ML  , BRAND NAME NOT SPECIFIED , THERAPY START
  6. PANTOPRAZOLE SODIUM [Concomitant]
     Active Substance: PANTOPRAZOLE SODIUM
     Dosage: 20 MILLIGRAM DAILY; 1 X PER DAY 1 PIECE , PANTOPRAZOL TABLET MSR 20MG / BRAND NAME NOT SPECIFIED , S

REACTIONS (3)
  - Malaise [Recovering/Resolving]
  - Circulatory collapse [Recovering/Resolving]
  - Hyponatraemia [Recovering/Resolving]

NARRATIVE: CASE EVENT DATE: 20220405
